FAERS Safety Report 22328353 (Version 1)
Quarter: 2023Q2

REPORT INFORMATION
  Report Type: Spontaneous
  Country: US (occurrence: None)
  Receive Date: 20230517
  Receipt Date: 20230517
  Transmission Date: 20230721
  Serious: No
  Sender: FDA-Public Use
  Company Number: 2023A099661

PATIENT
  Sex: Male

DRUGS (2)
  1. LOKELMA [Suspect]
     Active Substance: SODIUM ZIRCONIUM CYCLOSILICATE
     Indication: Blood potassium abnormal
     Route: 048
     Dates: start: 2023
  2. LOKELMA [Suspect]
     Active Substance: SODIUM ZIRCONIUM CYCLOSILICATE
     Indication: Blood potassium abnormal
     Route: 048
     Dates: start: 20230426

REACTIONS (2)
  - Blood potassium increased [Unknown]
  - Drug ineffective [Unknown]
